FAERS Safety Report 21705666 (Version 1)
Quarter: 2022Q4

REPORT INFORMATION
  Report Type: Spontaneous
  Country: AU (occurrence: AU)
  Receive Date: 20221209
  Receipt Date: 20221209
  Transmission Date: 20230113
  Serious: No
  Sender: FDA-Public Use
  Company Number: AU-SEPTODONT-2022016630

PATIENT
  Age: 51 Year
  Sex: Male

DRUGS (3)
  1. EPINEPHRINE BITARTRATE\LIDOCAINE HYDROCHLORIDE [Suspect]
     Active Substance: EPINEPHRINE BITARTRATE\LIDOCAINE HYDROCHLORIDE
     Indication: Dental local anaesthesia
     Dosage: 4 CARTRIDGES
     Route: 004
     Dates: start: 20220907, end: 20220907
  2. Xylocaine  5% ointment [Concomitant]
     Indication: Product used for unknown indication
     Dates: start: 20220907, end: 20220907
  3. MICARDIS [Concomitant]
     Active Substance: TELMISARTAN
     Indication: Product used for unknown indication

REACTIONS (5)
  - Drug ineffective [Unknown]
  - Drug effect less than expected [Unknown]
  - Paraesthesia [Unknown]
  - Pain [Unknown]
  - Electric shock sensation [Unknown]

NARRATIVE: CASE EVENT DATE: 20220907
